FAERS Safety Report 26100369 (Version 1)
Quarter: 2025Q4

REPORT INFORMATION
  Report Type: Spontaneous
  Country: EU (occurrence: EU)
  Receive Date: 20251128
  Receipt Date: 20251128
  Transmission Date: 20260118
  Serious: Yes (Hospitalization)
  Sender: ABBVIE
  Company Number: None

PATIENT
  Age: 74 Year
  Sex: Male

DRUGS (2)
  1. ESCITALOPRAM OXALATE [Suspect]
     Active Substance: ESCITALOPRAM OXALATE
     Indication: Depression
     Dosage: 20 MILLIGRAM
     Route: 048
  2. LYRICA [Suspect]
     Active Substance: PREGABALIN
     Indication: Cancer pain
     Route: 048

REACTIONS (2)
  - Hyponatraemia [Recovering/Resolving]
  - Confusional state [Recovering/Resolving]
